FAERS Safety Report 14435734 (Version 1)
Quarter: 2018Q1

REPORT INFORMATION
  Report Type: Spontaneous
  Country: US (occurrence: US)
  Receive Date: 20180125
  Receipt Date: 20180125
  Transmission Date: 20180509
  Serious: No
  Sender: FDA-Public Use
  Company Number: US-UNITED THERAPEUTICS-UNT-2017-008235

PATIENT
  Age: 72 Year
  Sex: Female
  Weight: 51.11 kg

DRUGS (4)
  1. WARFARIN [Concomitant]
     Active Substance: WARFARIN
     Indication: PRODUCT USED FOR UNKNOWN INDICATION
  2. ADEMPAS [Concomitant]
     Active Substance: RIOCIGUAT
     Indication: PRODUCT USED FOR UNKNOWN INDICATION
  3. OPSUMIT [Concomitant]
     Active Substance: MACITENTAN
     Indication: PRODUCT USED FOR UNKNOWN INDICATION
  4. REMODULIN [Suspect]
     Active Substance: TREPROSTINIL
     Indication: PULMONARY ARTERIAL HYPERTENSION
     Dosage: 0.010 ?G/KG, CONTINUING
     Route: 058
     Dates: start: 20170519

REACTIONS (27)
  - Vitreous floaters [Unknown]
  - Hypotension [Unknown]
  - Feeling abnormal [Unknown]
  - Anxiety [Unknown]
  - Asthenia [Unknown]
  - Malaise [Not Recovered/Not Resolved]
  - Insomnia [Unknown]
  - Pain in extremity [Unknown]
  - Neuralgia [Unknown]
  - Mucous stools [Unknown]
  - Bowel movement irregularity [Not Recovered/Not Resolved]
  - Dyspnoea [Not Recovered/Not Resolved]
  - Fatigue [Unknown]
  - Feeling abnormal [Unknown]
  - Flank pain [Unknown]
  - Panic attack [Unknown]
  - Oedema peripheral [Unknown]
  - Infusion site haemorrhage [Unknown]
  - Diarrhoea [Recovered/Resolved]
  - Crying [Unknown]
  - Constipation [Unknown]
  - Muscle spasms [Unknown]
  - Dizziness [Unknown]
  - Proctalgia [Unknown]
  - Weight increased [Unknown]
  - Oxygen saturation decreased [Unknown]
  - Infusion site pruritus [Unknown]

NARRATIVE: CASE EVENT DATE: 2017
